FAERS Safety Report 16637843 (Version 2)
Quarter: 2019Q3

REPORT INFORMATION
  Report Type: Spontaneous
  Country: CN (occurrence: CN)
  Receive Date: 20190726
  Receipt Date: 20190801
  Transmission Date: 20191004
  Serious: Yes (Death, Hospitalization)
  Sender: FDA-Public Use
  Company Number: CN-ASTRAZENECA-2019SF06913

PATIENT
  Sex: Female
  Weight: 45 kg

DRUGS (3)
  1. LYNPARZA [Suspect]
     Active Substance: OLAPARIB
     Indication: OVARIAN EPITHELIAL CANCER
     Dosage: 2 TABLET TWO TIMES A DAY
     Route: 048
     Dates: start: 2018
  2. LYNPARZA [Suspect]
     Active Substance: OLAPARIB
     Indication: OVARIAN EPITHELIAL CANCER
     Dosage: 1 TABLET TWO TIMES A DAY
     Route: 048
  3. LYNPARZA [Suspect]
     Active Substance: OLAPARIB
     Indication: OVARIAN EPITHELIAL CANCER
     Route: 048

REACTIONS (8)
  - Malignant neoplasm progression [Fatal]
  - Cardiac failure [Fatal]
  - Platelet count decreased [Not Recovered/Not Resolved]
  - Product dose omission [Unknown]
  - Ileus [Fatal]
  - Lung infection [Fatal]
  - Pyrexia [Not Recovered/Not Resolved]
  - Constipation [Unknown]
